FAERS Safety Report 7395121-8 (Version None)
Quarter: 2011Q2

REPORT INFORMATION
  Report Type: 
  Country: None (occurrence: None)
  Receive Date: 20110405
  Receipt Date: 20110322
  Transmission Date: 20111010
  Serious: Yes (Other)
  Sender: FDA-Public Use
  Company Number: PHHY2010DE54063

PATIENT
  Sex: Female

DRUGS (4)
  1. CYTOSINE ARABINOSIDE [Concomitant]
  2. ASPARAGINASE [Concomitant]
  3. GLEEVEC [Suspect]
     Indication: ACUTE LYMPHOCYTIC LEUKAEMIA
     Dosage: 400 MG, UNK
     Route: 048
     Dates: start: 20090901, end: 20100801
  4. METHOTREXATE [Concomitant]
     Dosage: UNK

REACTIONS (3)
  - PULMONARY TUBERCULOSIS [None]
  - BONE TUBERCULOSIS [None]
  - LIVER FUNCTION TEST ABNORMAL [None]
